FAERS Safety Report 6296927-9 (Version None)
Quarter: 2009Q3

REPORT INFORMATION
  Report Type: 
  Country: None (occurrence: None)
  Receive Date: 20090804
  Receipt Date: 20090721
  Transmission Date: 20100115
  Serious: No
  Sender: FDA-Public Use
  Company Number: US-SOLVAY-00209004047

PATIENT
  Sex: Female

DRUGS (1)
  1. ANDROGEL [Suspect]
     Indication: ACCIDENTAL EXPOSURE
     Dosage: DAILY DOSE: 5 GRAM(S); VIA PUMP
     Route: 062
     Dates: start: 20090301

REACTIONS (2)
  - ACCIDENTAL EXPOSURE [None]
  - BLOOD TESTOSTERONE DECREASED [None]
